FAERS Safety Report 4731020-5 (Version None)
Quarter: 2005Q3

REPORT INFORMATION
  Report Type: 
  Country: None (occurrence: None)
  Receive Date: 20050801
  Receipt Date: 20050517
  Transmission Date: 20060218
  Serious: Yes (Hospitalization)
  Sender: FDA-Public Use
  Company Number: RO-MERCK-0505HUN00010

PATIENT
  Age: 35 Year
  Sex: Male
  Weight: 80 kg

DRUGS (5)
  1. CANCIDAS [Suspect]
     Indication: EYE INFECTION FUNGAL
     Route: 042
     Dates: start: 20050509, end: 20050509
  2. CANCIDAS [Suspect]
     Route: 042
     Dates: start: 20050510, end: 20050609
  3. RANITIDINE HYDROCHLORIDE [Concomitant]
     Indication: DUODENAL ULCER
     Route: 065
     Dates: start: 20050429
  4. METOCLOPRAMIDE [Concomitant]
     Indication: DUODENAL ULCER
     Route: 065
     Dates: start: 20050429
  5. DIPYRONE [Concomitant]
     Indication: PERITONITIS
     Route: 065
     Dates: start: 20050429

REACTIONS (1)
  - HEPATITIS C [None]
